FAERS Safety Report 7471307-9 (Version None)
Quarter: 2011Q2

REPORT INFORMATION
  Report Type: 
  Country: None (occurrence: None)
  Receive Date: 20110510
  Receipt Date: 20110505
  Transmission Date: 20111010
  Serious: Yes (Death, Life-Threatening, Hospitalization, Other)
  Sender: FDA-Public Use
  Company Number: US-ABBOTT-06P-163-0348511-00

PATIENT
  Sex: Female
  Weight: 51.8 kg

DRUGS (41)
  1. WARFARIN [Concomitant]
     Indication: PRODUCT USED FOR UNKNOWN INDICATION
  2. HEPARIN [Concomitant]
     Indication: PRODUCT USED FOR UNKNOWN INDICATION
  3. NEO-SYNEPHRINOL [Concomitant]
     Indication: PRODUCT USED FOR UNKNOWN INDICATION
  4. DOPAMINE HCL [Concomitant]
     Indication: PRODUCT USED FOR UNKNOWN INDICATION
  5. EPINEPHRINE [Concomitant]
     Indication: PRODUCT USED FOR UNKNOWN INDICATION
  6. SOLU-CORTEF [Concomitant]
     Indication: PRODUCT USED FOR UNKNOWN INDICATION
  7. MAGNESIUM SULFATE [Concomitant]
     Indication: PRODUCT USED FOR UNKNOWN INDICATION
  8. PREOPERATIVE ANESTHESIA [Suspect]
     Indication: PRODUCT USED FOR UNKNOWN INDICATION
     Dates: start: 20040804, end: 20040804
  9. SYNTHROID [Concomitant]
     Indication: PRODUCT USED FOR UNKNOWN INDICATION
  10. NORMOSOL [Concomitant]
     Indication: PRODUCT USED FOR UNKNOWN INDICATION
  11. PROTAMINE SULFATE [Concomitant]
     Indication: PRODUCT USED FOR UNKNOWN INDICATION
     Dates: start: 20040804, end: 20040804
  12. BENADRYL [Concomitant]
     Indication: PRODUCT USED FOR UNKNOWN INDICATION
  13. NIMBEX [Suspect]
     Indication: PRODUCT USED FOR UNKNOWN INDICATION
  14. PROTAMINE SULFATE [Suspect]
     Indication: PRODUCT USED FOR UNKNOWN INDICATION
  15. PRE-OPERATIVE ANTIBIOTIC [Suspect]
     Indication: PRODUCT USED FOR UNKNOWN INDICATION
     Dates: start: 20040804, end: 20040804
  16. LESCOL [Concomitant]
     Indication: PRODUCT USED FOR UNKNOWN INDICATION
  17. SONATA [Concomitant]
     Indication: PRODUCT USED FOR UNKNOWN INDICATION
  18. ZITHROMAX [Concomitant]
     Indication: PRODUCT USED FOR UNKNOWN INDICATION
  19. NORMAL SALINE [Concomitant]
     Indication: PRODUCT USED FOR UNKNOWN INDICATION
  20. INSULIN [Concomitant]
     Indication: PRODUCT USED FOR UNKNOWN INDICATION
  21. IRON SULFATETHIAMIN COMPOUND TAB [Concomitant]
     Indication: PRODUCT USED FOR UNKNOWN INDICATION
  22. DIGOXIN [Concomitant]
     Indication: PRODUCT USED FOR UNKNOWN INDICATION
  23. POTASSIUM CHLORIDE [Concomitant]
     Indication: PRODUCT USED FOR UNKNOWN INDICATION
  24. CEFAZOLIN [Concomitant]
     Indication: PRODUCT USED FOR UNKNOWN INDICATION
  25. TRASYLOL [Suspect]
     Route: 042
     Dates: start: 20040804, end: 20040804
  26. TRASYLOL [Suspect]
  27. DARVOCET [Concomitant]
     Indication: PRODUCT USED FOR UNKNOWN INDICATION
  28. ALBUMIN (HUMAN) [Concomitant]
     Indication: PRODUCT USED FOR UNKNOWN INDICATION
  29. VERSED [Concomitant]
     Indication: PRODUCT USED FOR UNKNOWN INDICATION
  30. SODIUM CHLORIDE [Concomitant]
     Indication: PRODUCT USED FOR UNKNOWN INDICATION
  31. VITAMIN C [Concomitant]
     Indication: PRODUCT USED FOR UNKNOWN INDICATION
  32. FOSAMAX [Concomitant]
     Indication: PRODUCT USED FOR UNKNOWN INDICATION
  33. KANAMYCIN SULFATE [Concomitant]
     Indication: PRODUCT USED FOR UNKNOWN INDICATION
  34. TRASYLOL [Suspect]
     Indication: AORTIC VALVE REPLACEMENT
     Route: 042
     Dates: start: 20040804, end: 20040804
  35. CALCIUM [Concomitant]
     Indication: PRODUCT USED FOR UNKNOWN INDICATION
  36. MANNITOL [Concomitant]
     Indication: PRODUCT USED FOR UNKNOWN INDICATION
  37. LASIX [Concomitant]
     Indication: PRODUCT USED FOR UNKNOWN INDICATION
     Dates: start: 20040713
  38. AMIODARONE [Concomitant]
     Indication: PRODUCT USED FOR UNKNOWN INDICATION
     Dates: start: 20040525
  39. VITAMINS [Concomitant]
     Indication: PRODUCT USED FOR UNKNOWN INDICATION
  40. LACTATED RINGER'S [Concomitant]
     Indication: PRODUCT USED FOR UNKNOWN INDICATION
  41. ZANTAC [Concomitant]
     Indication: PRODUCT USED FOR UNKNOWN INDICATION

REACTIONS (21)
  - RENAL FAILURE [None]
  - PAIN [None]
  - ANAPHYLACTIC SHOCK [None]
  - ADVERSE DRUG REACTION [None]
  - RENAL IMPAIRMENT [None]
  - POST PROCEDURAL COMPLICATION [None]
  - ANAPHYLACTIC REACTION [None]
  - VENTRICULAR HYPOKINESIA [None]
  - HYPOTENSION [None]
  - DISSEMINATED INTRAVASCULAR COAGULATION [None]
  - RESPIRATORY FAILURE [None]
  - VENTRICULAR FIBRILLATION [None]
  - CARDIAC ARREST [None]
  - EMOTIONAL DISORDER [None]
  - FEAR [None]
  - OEDEMA [None]
  - STRESS [None]
  - ANXIETY [None]
  - BRADYCARDIA [None]
  - MULTI-ORGAN FAILURE [None]
  - RENAL INJURY [None]
